FAERS Safety Report 9808704 (Version 1)
Quarter: 2014Q1

REPORT INFORMATION
  Report Type: Spontaneous
  Country: US (occurrence: US)
  Receive Date: 20140110
  Receipt Date: 20140110
  Transmission Date: 20141002
  Serious: No
  Sender: FDA-Public Use
  Company Number: US-TEVA-455095USA

PATIENT
  Sex: Male
  Weight: 74.91 kg

DRUGS (6)
  1. NUVIGIL [Suspect]
     Indication: INSOMNIA
  2. DIAZEPAM [Concomitant]
     Indication: MUSCLE SPASMS
  3. HYDROMORPHONE [Concomitant]
     Indication: PAIN
     Dosage: PRN
  4. LISINOPRIL [Concomitant]
     Indication: BLOOD PRESSURE
  5. MULTIVITAMIN [Concomitant]
  6. BABY ASPIRIN [Concomitant]
     Indication: ANTICOAGULANT THERAPY

REACTIONS (9)
  - Flushing [Not Recovered/Not Resolved]
  - Feeling hot [Not Recovered/Not Resolved]
  - Back pain [Not Recovered/Not Resolved]
  - Myalgia [Not Recovered/Not Resolved]
  - Pain in extremity [Not Recovered/Not Resolved]
  - Musculoskeletal stiffness [Not Recovered/Not Resolved]
  - Skin discomfort [Not Recovered/Not Resolved]
  - Pyrexia [Not Recovered/Not Resolved]
  - Off label use [Unknown]
